FAERS Safety Report 21951976 (Version 2)
Quarter: 2023Q1

REPORT INFORMATION
  Report Type: Spontaneous
  Country: JP (occurrence: JP)
  Receive Date: 20230203
  Receipt Date: 20230331
  Transmission Date: 20230417
  Serious: Yes (Hospitalization, Other)
  Sender: FDA-Public Use
  Company Number: JP-GSK-JP2022JPN200262

PATIENT

DRUGS (1)
  1. SOTROVIMAB [Suspect]
     Active Substance: SOTROVIMAB
     Dosage: 500 MG
     Route: 041
     Dates: start: 20220805, end: 20220805

REACTIONS (4)
  - Pneumonia [Recovering/Resolving]
  - Lung abscess [Recovering/Resolving]
  - Condition aggravated [Recovering/Resolving]
  - Pyrexia [Unknown]

NARRATIVE: CASE EVENT DATE: 20220812
